FAERS Safety Report 22014015 (Version 1)
Quarter: 2023Q1

REPORT INFORMATION
  Report Type: Report from Study
  Country: US (occurrence: US)
  Receive Date: 20230221
  Receipt Date: 20230221
  Transmission Date: 20230418
  Serious: Yes (Other)
  Sender: FDA-Public Use
  Company Number: US-ABBVIE-4313293

PATIENT
  Age: 62 Year
  Sex: Female

DRUGS (14)
  1. RINVOQ [Suspect]
     Active Substance: UPADACITINIB
     Indication: Rheumatoid arthritis
     Route: 048
     Dates: start: 202102
  2. MUPIROCIN [Concomitant]
     Active Substance: MUPIROCIN
     Indication: Product used for unknown indication
     Route: 061
  3. DUPIXENT [Concomitant]
     Active Substance: DUPILUMAB
     Indication: Product used for unknown indication
  4. POTASSIUM 595 mg [Concomitant]
     Indication: Product used for unknown indication
     Route: 048
  5. ACYCLOVIR 200 mg [Concomitant]
     Indication: Product used for unknown indication
     Route: 048
  6. TRAMADOL HYDROCHLORIDE [Concomitant]
     Active Substance: TRAMADOL HYDROCHLORIDE
     Indication: Product used for unknown indication
     Route: 048
  7. DESONIDE [Concomitant]
     Active Substance: DESONIDE
     Indication: Product used for unknown indication
     Route: 061
  8. CARVEDILOL 12500 mcg [Concomitant]
     Indication: Product used for unknown indication
     Route: 048
  9. SAVELLA 100 mg [Concomitant]
     Indication: Product used for unknown indication
     Route: 048
  10. AMITRIPTYLINE HCL 100 mg [Concomitant]
     Indication: Product used for unknown indication
     Route: 048
  11. MOMETASONE FUROATE [Concomitant]
     Active Substance: MOMETASONE FUROATE
     Indication: Product used for unknown indication
     Route: 048
  12. GABAPENTIN [Concomitant]
     Active Substance: GABAPENTIN
     Indication: Product used for unknown indication
     Route: 048
  13. MONTELUKAST SODIUM [Concomitant]
     Active Substance: MONTELUKAST SODIUM
     Indication: Product used for unknown indication
     Route: 048
  14. TRIAMTERENE 50 mg [Concomitant]
     Indication: Product used for unknown indication
     Route: 048

REACTIONS (1)
  - Pharyngeal operation [Unknown]

NARRATIVE: CASE EVENT DATE: 20230213
